FAERS Safety Report 12313646 (Version 1)
Quarter: 2016Q2

REPORT INFORMATION
  Report Type: Spontaneous
  Country: US (occurrence: None)
  Receive Date: 20160427
  Receipt Date: 20160427
  Transmission Date: 20160815
  Serious: No
  Sender: FDA-Public Use
  Company Number: None

PATIENT
  Age: 83 Year
  Sex: Male
  Weight: 85.28 kg

DRUGS (8)
  1. ALBUTEROL D.3 [Concomitant]
  2. CORDIO PLUS [Concomitant]
  3. CATAPLEX B [Concomitant]
  4. COZAAR [Suspect]
     Active Substance: LOSARTAN POTASSIUM
     Indication: BLOOD PRESSURE MEASUREMENT
     Dosage: 1 PILL BY MOUTH-WITH WATER
     Route: 048
     Dates: start: 20151215, end: 20151216
  5. SPIRIVA [Concomitant]
     Active Substance: TIOTROPIUM BROMIDE MONOHYDRATE
  6. CATYLIN [Concomitant]
  7. TAMSULOSIN [Concomitant]
     Active Substance: TAMSULOSIN
  8. D4 [Concomitant]

REACTIONS (4)
  - Palpitations [None]
  - Dyspnoea [None]
  - Cough [None]
  - Heart rate increased [None]

NARRATIVE: CASE EVENT DATE: 20151215
